FAERS Safety Report 7593660-8 (Version None)
Quarter: 2011Q3

REPORT INFORMATION
  Report Type: 
  Country: None (occurrence: None)
  Receive Date: 20110706
  Receipt Date: 20110705
  Transmission Date: 20111222
  Serious: Yes (Death)
  Sender: FDA-Public Use
  Company Number: PHFR2011GB03061

PATIENT
  Sex: Male

DRUGS (5)
  1. SIMVASTATIN [Concomitant]
  2. BENDROFLUAZIDE [Concomitant]
  3. CLOZAPINE [Suspect]
     Indication: SCHIZOPHRENIA
     Dates: start: 20070101
  4. RAMIPRIL [Concomitant]
  5. SERTRALINE HYDROCHLORIDE [Concomitant]

REACTIONS (1)
  - DEATH [None]
